FAERS Safety Report 22259325 (Version 1)
Quarter: 2023Q2

REPORT INFORMATION
  Report Type: Spontaneous
  Country: GB (occurrence: GB)
  Receive Date: 20230427
  Receipt Date: 20230427
  Transmission Date: 20230722
  Serious: Yes (Other)
  Sender: FDA-Public Use
  Company Number: GB-MHRA-MED-202304181552399430-KNVDF

PATIENT
  Age: 55 Year
  Sex: Male

DRUGS (8)
  1. OLANZAPINE PAMOATE [Suspect]
     Active Substance: OLANZAPINE PAMOATE
     Indication: Schizophrenia
     Dosage: 210 MG, 2/M
     Route: 030
     Dates: start: 20230315, end: 20230411
  2. OLANZAPINE PAMOATE [Suspect]
     Active Substance: OLANZAPINE PAMOATE
     Indication: Schizophrenia
     Dosage: 210 MG, 2/M
     Route: 030
     Dates: start: 20230315, end: 20230411
  3. OLANZAPINE PAMOATE [Suspect]
     Active Substance: OLANZAPINE PAMOATE
     Indication: Schizophrenia
     Dosage: 210 MG, 2/M
     Route: 030
     Dates: start: 20230315, end: 20230411
  4. CLONAZEPAM [Concomitant]
     Active Substance: CLONAZEPAM
     Indication: Product used for unknown indication
     Dosage: UNK
  5. LEVOTHYROXINE [Concomitant]
     Active Substance: LEVOTHYROXINE
     Indication: Hypothyroidism
     Dosage: UNK
     Dates: start: 20221221
  6. TRIPTORELIN [Concomitant]
     Active Substance: TRIPTORELIN
     Indication: Hypersexuality
     Dosage: UNK
     Dates: start: 20230202
  7. VALPROIC ACID [Concomitant]
     Active Substance: VALPROIC ACID
     Indication: Product used for unknown indication
     Dosage: UNK
  8. ZUCLOPENTHIXOL [Concomitant]
     Active Substance: ZUCLOPENTHIXOL
     Indication: Product used for unknown indication
     Dosage: UNK

REACTIONS (3)
  - Cellulitis [Unknown]
  - Skin ulcer [Unknown]
  - Oedema peripheral [Recovering/Resolving]

NARRATIVE: CASE EVENT DATE: 20230322
